FAERS Safety Report 9445602 (Version 2)
Quarter: 2013Q3

REPORT INFORMATION
  Report Type: Spontaneous
  Country: US (occurrence: US)
  Receive Date: 20130806
  Receipt Date: 20130826
  Transmission Date: 20140515
  Serious: Yes (Hospitalization)
  Sender: FDA-Public Use
  Company Number: US-B.I. PHARMACEUTICALS,INC./RIDGEFIELD-2013-BI-23121BP

PATIENT
  Sex: Male

DRUGS (2)
  1. AGGRENOX [Suspect]
  2. MULTIPLE HERBAL SUPPLIMENTS [Concomitant]

REACTIONS (1)
  - Cerebral haemorrhage [Recovered/Resolved]
